FAERS Safety Report 7098829-7 (Version None)
Quarter: 2010Q4

REPORT INFORMATION
  Report Type: 
  Country: None (occurrence: None)
  Receive Date: 20101112
  Receipt Date: 20080612
  Transmission Date: 20110411
  Serious: No
  Sender: FDA-Public Use
  Company Number: US-KINGPHARMUSA00001-K200800695

PATIENT
  Sex: Female

DRUGS (3)
  1. LEVOXYL [Suspect]
     Indication: HYPOTHYROIDISM
     Dosage: 12.5 MCG, 1/2 OF 25 MCG TABLET, UNK
     Dates: start: 20080422, end: 20080501
  2. VALTREX [Concomitant]
  3. ATIVAN [Concomitant]
     Dosage: .5 MG, UNK

REACTIONS (5)
  - CRYING [None]
  - INSOMNIA [None]
  - PALPITATIONS [None]
  - THYROID DISORDER [None]
  - VISION BLURRED [None]
